FAERS Safety Report 13812916 (Version 1)
Quarter: 2017Q3

REPORT INFORMATION
  Report Type: Spontaneous
  Country: US (occurrence: US)
  Receive Date: 20170731
  Receipt Date: 20170731
  Transmission Date: 20171127
  Serious: No
  Sender: FDA-Public Use
  Company Number: US-AUROBINDO-AUR-APU-2016-09878

PATIENT
  Sex: Female

DRUGS (2)
  1. ACIDOPHILUS [Concomitant]
     Active Substance: LACTOBACILLUS ACIDOPHILUS
     Indication: PRODUCT USED FOR UNKNOWN INDICATION
     Route: 065
  2. CEFPODOXIME PROXETIL TABLETS USP 200MG [Suspect]
     Active Substance: CEFPODOXIME PROXETIL
     Indication: URINARY TRACT INFECTION
     Dosage: 2 DF, TWO TIMES A DAY
     Route: 065
     Dates: start: 20160720, end: 20160724

REACTIONS (6)
  - Eye disorder [Not Recovered/Not Resolved]
  - Feeling abnormal [Not Recovered/Not Resolved]
  - Mood altered [Not Recovered/Not Resolved]
  - Tremor [Not Recovered/Not Resolved]
  - Vision blurred [Not Recovered/Not Resolved]
  - Asthenia [Not Recovered/Not Resolved]
